FAERS Safety Report 8531075-6 (Version None)
Quarter: 2012Q3

REPORT INFORMATION
  Report Type: 
  Country: None (occurrence: None)
  Receive Date: 20120723
  Receipt Date: 20120719
  Transmission Date: 20120928
  Serious: Yes (Hospitalization)
  Sender: FDA-Public Use
  Company Number: US-ROCHE-GNE309791

PATIENT
  Sex: Female
  Weight: 93.978 kg

DRUGS (13)
  1. RHINOCORT [Concomitant]
     Indication: HYPERSENSITIVITY
     Dosage: UNK
  2. ZYRTEC [Concomitant]
     Indication: HYPERSENSITIVITY
     Dosage: UNK
  3. ADVIL [Concomitant]
     Indication: HEADACHE
  4. FLONASE [Concomitant]
     Indication: HYPERSENSITIVITY
  5. CLARITIN [Concomitant]
  6. OMALIZUMAB [Suspect]
     Indication: ASTHMA
     Dosage: 150 MG, Q4W
     Route: 058
     Dates: start: 20100320
  7. LOHIST NOS [Concomitant]
     Indication: HYPERSENSITIVITY
  8. TYLENOL [Concomitant]
     Indication: HEADACHE
  9. VITAMIN AND MINERAL PRENATAL SUPPLEMENT W/ FOLIC ACID CAP [Concomitant]
     Indication: PREGNANCY
     Dosage: UNK
  10. SINGULAIR [Concomitant]
     Indication: ASTHMA
  11. SYMBICORT [Concomitant]
     Indication: ASTHMA
     Dosage: UNK
  12. OMALIZUMAB [Suspect]
     Dates: start: 20110917
  13. IRON SUPPLEMENT [Concomitant]
     Indication: PREGNANCY
     Dosage: UNK

REACTIONS (2)
  - MATERNAL EXPOSURE DURING PREGNANCY [None]
  - GESTATIONAL HYPERTENSION [None]
